APPROVED DRUG PRODUCT: HYDRO-RESERP
Active Ingredient: HYDROCHLOROTHIAZIDE; RESERPINE
Strength: 50MG;0.125MG
Dosage Form/Route: TABLET;ORAL
Application: A084714 | Product #002
Applicant: ABC HOLDING CORP
Approved: Jun 29, 1982 | RLD: No | RS: No | Type: DISCN